FAERS Safety Report 5158322-5 (Version None)
Quarter: 2006Q4

REPORT INFORMATION
  Report Type: 
  Country: None (occurrence: None)
  Receive Date: 20061128
  Receipt Date: 20061116
  Transmission Date: 20070319
  Serious: Yes (Death)
  Sender: FDA-Public Use
  Company Number: BR-JNJFOC-20061104406

PATIENT
  Age: 78 Year
  Sex: Male

DRUGS (8)
  1. LEVAQUIN [Suspect]
     Indication: PNEUMONIA
     Route: 042
  2. AMPICILLIN SODIUM [Concomitant]
     Route: 065
  3. DIGOXIN [Concomitant]
     Route: 048
  4. FUROSEMIDE [Concomitant]
     Route: 048
  5. CAPTOPRIL [Concomitant]
     Route: 048
  6. PARENTERAL FLUID REPLACEMENT [Concomitant]
     Route: 065
  7. OXYGEN [Concomitant]
     Route: 065
  8. ANTAK [Concomitant]
     Route: 048

REACTIONS (3)
  - DEATH [None]
  - DEHYDRATION [None]
  - DIARRHOEA [None]
